FAERS Safety Report 6402563-3 (Version None)
Quarter: 2009Q4

REPORT INFORMATION
  Report Type: 
  Country: None (occurrence: None)
  Receive Date: 20091015
  Receipt Date: 20091009
  Transmission Date: 20100525
  Serious: Yes (Other)
  Sender: FDA-Public Use
  Company Number: DE-MERCK-0906DEU00089

PATIENT
  Age: 69 Year
  Sex: Female
  Weight: 55 kg

DRUGS (2)
  1. FOSAMAX PLUS D [Suspect]
     Indication: OSTEOPOROSIS
     Route: 048
     Dates: start: 20070620, end: 20090426
  2. CALCIUM (UNSPECIFIED) [Concomitant]
     Route: 048
     Dates: start: 20070620, end: 20090426

REACTIONS (2)
  - BLOOD URINE PRESENT [None]
  - HAEMATOCHEZIA [None]
